APPROVED DRUG PRODUCT: EFFEXOR XR
Active Ingredient: VENLAFAXINE HYDROCHLORIDE
Strength: EQ 150MG BASE
Dosage Form/Route: CAPSULE, EXTENDED RELEASE;ORAL
Application: N020699 | Product #004 | TE Code: AB
Applicant: UPJOHN US 2 LLC
Approved: Oct 20, 1997 | RLD: Yes | RS: Yes | Type: RX